FAERS Safety Report 4295440-8 (Version None)
Quarter: 2004Q1

REPORT INFORMATION
  Report Type: 
  Country: None (occurrence: None)
  Receive Date: 20040211
  Receipt Date: 20040129
  Transmission Date: 20041129
  Serious: Yes (Other)
  Sender: FDA-Public Use
  Company Number: HQWYE915429DEC03

PATIENT
  Age: 40 Year
  Sex: Female

DRUGS (6)
  1. LOGYNON (LEVONORGESTREL/ETHINYL ESTRADIOL, TABLET) [Suspect]
     Indication: ORAL CONTRACEPTION
     Dosage: 1 TABLET DAILY, ORAL
     Route: 048
  2. CHOLESTYRAMINE [Suspect]
     Indication: MALABSORPTION
     Dosage: DAILY, ORAL
     Route: 048
     Dates: start: 20031110
  3. THYROXINE SODIUM (LEVOTHYROXINE SODIUM, ) [Suspect]
     Indication: HYPOTHYROIDISM
     Dosage: 200 MCG DAILY, ORAL
     Route: 048
     Dates: start: 20010101
  4. COLOFAC (MEBEVERINE HYDROCHLORIDE) [Concomitant]
  5. MOTILIUM [Concomitant]
  6. CREON [Concomitant]

REACTIONS (2)
  - DRUG INTERACTION [None]
  - METRORRHAGIA [None]
